FAERS Safety Report 17117573 (Version 1)
Quarter: 2019Q4

REPORT INFORMATION
  Report Type: Report from Study
  Country: CY (occurrence: CY)
  Receive Date: 20191205
  Receipt Date: 20191205
  Transmission Date: 20200122
  Serious: Yes (Life-Threatening, Hospitalization)
  Sender: FDA-Public Use
  Company Number: CY-MYLANLABS-2019M1107041

PATIENT
  Age: 74 Year
  Sex: Female
  Weight: 54 kg

DRUGS (25)
  1. PACLITAXEL. [Suspect]
     Active Substance: PACLITAXEL
     Dosage: MOST RECENT DOSE:13/JAN/2017,30/DEC/2016
     Route: 042
     Dates: start: 20161122, end: 20161230
  2. PARAPLATIN [Suspect]
     Active Substance: CARBOPLATIN
     Indication: HER-2 POSITIVE BREAST CANCER
     Dosage: DATE OF MOST RECENT DOSE: 26/MAR/2018
     Route: 042
     Dates: start: 20180207
  3. DENEX [Concomitant]
     Dosage: ONGOING = CHECKED
     Route: 065
     Dates: start: 20160315
  4. PACLITAXEL. [Suspect]
     Active Substance: PACLITAXEL
     Dosage: MOST RECENT DOSE:13/JAN/2017
     Dates: end: 20170113
  5. BEPANTHOL                          /00178901/ [Concomitant]
     Dosage: UNK
     Route: 065
     Dates: start: 20170217
  6. BRUFEN                             /00109201/ [Concomitant]
     Active Substance: IBUPROFEN
     Indication: ARTHRALGIA
     Dosage: UNK
     Route: 065
     Dates: start: 20170620, end: 20180128
  7. TRASTUZUMAB. [Suspect]
     Active Substance: TRASTUZUMAB
     Indication: HER-2 POSITIVE BREAST CANCER
     Dosage: MOST RECENT DOSE:10/FEB/2017
     Route: 042
     Dates: start: 20170210, end: 20170210
  8. PACLITAXEL. [Suspect]
     Active Substance: PACLITAXEL
     Indication: HER-2 POSITIVE BREAST CANCER
     Dosage: 60 MILLIGRAM/SQ. METER, QW
     Route: 042
     Dates: start: 20161122, end: 20161230
  9. DEXAMETHASONE. [Concomitant]
     Active Substance: DEXAMETHASONE
     Dosage: GOING = NOT CHECKED
     Route: 065
     Dates: start: 20161122, end: 20170324
  10. RANITINE [Concomitant]
     Active Substance: RANITIDINE HYDROCHLORIDE
     Dosage: ONGOING = NOT CHECKED
     Route: 065
     Dates: start: 20161122, end: 20170324
  11. RAMIPRIL. [Concomitant]
     Active Substance: RAMIPRIL
     Dosage: ONGOING = CHECKED
     Route: 065
     Dates: start: 20170317
  12. SPIRONOLACTONE. [Concomitant]
     Active Substance: SPIRONOLACTONE
     Dosage: ONGOING = CHECKED
     Dates: start: 20170317
  13. NYSTATIN. [Concomitant]
     Active Substance: NYSTATIN
     Dosage: ONGOING = CHECKED
     Route: 065
     Dates: start: 20161121
  14. OMEPRAZOLE. [Concomitant]
     Active Substance: OMEPRAZOLE
     Indication: GASTROOESOPHAGEAL REFLUX DISEASE
     Dosage: ONGOING = NOT CHECKED
     Route: 065
     Dates: start: 20170317, end: 20170318
  15. VINORELBINE [Suspect]
     Active Substance: VINORELBINE TARTRATE
     Indication: HER-2 POSITIVE BREAST CANCER
     Dosage: MOST RECENT DOSE: 24/JAN/2018
     Route: 042
     Dates: start: 20170515, end: 20180124
  16. GEMZAR [Suspect]
     Active Substance: GEMCITABINE HYDROCHLORIDE
     Indication: HER-2 POSITIVE BREAST CANCER
     Dosage: MOST RECENT DOSE: 02/APR/2018
     Route: 042
     Dates: start: 20180207
  17. METOCHLOPRAMIDE [Concomitant]
     Active Substance: METOCLOPRAMIDE HYDROCHLORIDE
     Dosage: ONGOING = NOT CHECKED
     Route: 065
     Dates: start: 20161121, end: 20171220
  18. SIMVASTATIN. [Concomitant]
     Active Substance: SIMVASTATIN
     Dosage: ONGOING = NOT CHECKED
     Route: 065
     Dates: start: 20160315
  19. PLAVIX [Concomitant]
     Active Substance: CLOPIDOGREL BISULFATE
     Dosage: ONGOING = CHECKED
     Route: 065
     Dates: start: 20170317
  20. PROMETHASIN [Concomitant]
     Dosage: ONGOING = NOT CHECKED
     Route: 065
     Dates: start: 20161122, end: 20170324
  21. NU-SEALS ASPIRIN [Concomitant]
     Active Substance: ASPIRIN
     Dosage: UNK
     Route: 065
     Dates: start: 20160315
  22. NU-SEALS ASPIRIN [Concomitant]
     Active Substance: ASPIRIN
     Dosage: ONGOING = CHECKED
     Route: 065
     Dates: start: 20160315
  23. PEGFILGRASTIM [Concomitant]
     Active Substance: PEGFILGRASTIM
     Dosage: UNK
     Route: 065
     Dates: start: 20170606, end: 20180128
  24. AGREGEX [Concomitant]
     Active Substance: CLOPIDOGREL BISULFATE
     Dosage: ONGOING = CHECKED
     Route: 065
     Dates: start: 20160315
  25. ONDANSETRON [Concomitant]
     Active Substance: ONDANSETRON
     Dosage: UNK
     Route: 065
     Dates: start: 20180207, end: 20180208

REACTIONS (21)
  - Upper respiratory tract infection [Recovered/Resolved]
  - Vulvovaginal mycotic infection [Recovered/Resolved]
  - Peripheral sensory neuropathy [Recovered/Resolved]
  - Constipation [Recovered/Resolved]
  - Neutrophil count decreased [Recovered/Resolved]
  - Decreased appetite [Recovered/Resolved]
  - Ageusia [Recovered/Resolved]
  - Dry skin [Recovered/Resolved]
  - Urinary incontinence [Recovered/Resolved]
  - Hypersensitivity [Recovered/Resolved]
  - Cough [Recovered/Resolved]
  - Amnesia [Recovered/Resolved]
  - Catheter site erythema [Recovered/Resolved]
  - Vision blurred [Recovered/Resolved]
  - Fatigue [Recovered/Resolved]
  - Nausea [Recovered/Resolved]
  - Cushingoid [Recovered/Resolved]
  - Eye disorder [Recovered/Resolved]
  - Stomatitis [Recovered/Resolved]
  - Peripheral motor neuropathy [Recovered/Resolved]
  - Depression [Recovered/Resolved]

NARRATIVE: CASE EVENT DATE: 20170308
